FAERS Safety Report 6059130-3 (Version None)
Quarter: 2009Q1

REPORT INFORMATION
  Report Type: 
  Country: None (occurrence: None)
  Receive Date: 20090128
  Receipt Date: 20090119
  Transmission Date: 20090719
  Serious: Yes (Death, Hospitalization, Other)
  Sender: FDA-Public Use
  Company Number: 2009US000006

PATIENT
  Age: 94 Year
  Sex: Female
  Weight: 77.1 kg

DRUGS (11)
  1. LEXISCAN [Suspect]
     Indication: SCAN MYOCARDIAL PERFUSION
     Dosage: UNK, UNKNOWN/D, UNKNOWN
     Dates: start: 20081226, end: 20081226
  2. ASPIRIN [Concomitant]
  3. COZAAR [Concomitant]
  4. DARVOCET-N (DEXTROPROPOXYPHENE NAPSILATE) [Concomitant]
  5. GABAPENTIN [Concomitant]
  6. IMDUR [Concomitant]
  7. NPH INSULIN [Concomitant]
  8. ISOSORBIDE (ISOSORBIDE) [Concomitant]
  9. METOPROLOL TARTRATE [Concomitant]
  10. PLAVIX [Concomitant]
  11. SIMVASTATIN [Concomitant]

REACTIONS (3)
  - ACUTE PULMONARY OEDEMA [None]
  - CHEST PAIN [None]
  - ELECTROCARDIOGRAM ST SEGMENT DEPRESSION [None]
